FAERS Safety Report 6428708-7 (Version None)
Quarter: 2009Q4

REPORT INFORMATION
  Report Type: 
  Country: None (occurrence: None)
  Receive Date: 20091103
  Receipt Date: 20091019
  Transmission Date: 20100525
  Serious: Yes (Death)
  Sender: FDA-Public Use
  Company Number: AE 2009-142

PATIENT
  Age: 47 Year
  Sex: Female

DRUGS (4)
  1. FAZACLO ODT [Suspect]
     Indication: SCHIZOPHRENIA
     Dosage: 400 MG BID PO
     Route: 048
     Dates: start: 20071119, end: 20090905
  2. FERROUS SULFATE TAB [Concomitant]
  3. FLUPHENAZINE [Concomitant]
  4. ENALAPRIL MALEATE [Concomitant]

REACTIONS (3)
  - CARDIAC ARREST [None]
  - HYPOPHAGIA [None]
  - VOMITING [None]
